FAERS Safety Report 10380578 (Version 1)
Quarter: 2014Q3

REPORT INFORMATION
  Report Type: Spontaneous
  Country: JP (occurrence: JP)
  Receive Date: 20140813
  Receipt Date: 20140813
  Transmission Date: 20150326
  Serious: Yes (Other)
  Sender: FDA-Public Use
  Company Number: PHHY2014JP099161

PATIENT
  Age: 76 Year
  Sex: Female

DRUGS (1)
  1. GLIVEC [Suspect]
     Active Substance: IMATINIB MESYLATE
     Indication: CHRONIC MYELOID LEUKAEMIA

REACTIONS (18)
  - Headache [Unknown]
  - Rash [Unknown]
  - Decreased appetite [Unknown]
  - Depression [Unknown]
  - Skin atrophy [Unknown]
  - Hair colour changes [Unknown]
  - Oedema [Unknown]
  - Malaise [Unknown]
  - Muscle spasms [Unknown]
  - Conjunctival haemorrhage [Unknown]
  - Palpitations [Unknown]
  - Constipation [Unknown]
  - Nausea [Unknown]
  - Myalgia [Unknown]
  - Skin discolouration [Unknown]
  - Dizziness [Unknown]
  - Diarrhoea [Unknown]
  - Dyspnoea [Unknown]
